FAERS Safety Report 10516867 (Version 1)
Quarter: 2014Q4

REPORT INFORMATION
  Report Type: Spontaneous
  Country: US (occurrence: None)
  Receive Date: 20141003
  Receipt Date: 20141003
  Transmission Date: 20150528
  Serious: Yes (Other)
  Sender: FDA-Public Use
  Company Number: 1405568

PATIENT
  Age: 51 Year
  Sex: Male

DRUGS (3)
  1. PEGASYS [Suspect]
     Active Substance: PEGINTERFERON ALFA-2A
     Indication: PRODUCT USED FOR UNKNOWN INDICATION
     Dosage: 180 UG, 1 IN 1 WK, SUBCUTANEOUS
     Route: 058
     Dates: start: 20140407, end: 20140512
  2. SOVALDI ( SOFOSBUVIR) [Concomitant]
  3. RIBAVIRIN. [Concomitant]
     Active Substance: RIBAVIRIN

REACTIONS (5)
  - Haemoglobin decreased [None]
  - Arthralgia [None]
  - Productive cough [None]
  - Headache [None]
  - Muscular weakness [None]
